FAERS Safety Report 4490413-4 (Version None)
Quarter: 2004Q4

REPORT INFORMATION
  Report Type: 
  Country: None (occurrence: None)
  Receive Date: 20041102
  Receipt Date: 20040616
  Transmission Date: 20050328
  Serious: Yes (Hospitalization, Other)
  Sender: FDA-Public Use
  Company Number: 200416145GDDC

PATIENT
  Age: 52 Year
  Sex: Male

DRUGS (1)
  1. ARAVA [Suspect]
     Indication: RHEUMATOID ARTHRITIS
     Route: 048
     Dates: start: 20040331, end: 20040604

REACTIONS (9)
  - DIPLOPIA [None]
  - DIZZINESS [None]
  - HYPOAESTHESIA [None]
  - PAIN IN EXTREMITY [None]
  - PHARYNGOLARYNGEAL PAIN [None]
  - STEVENS-JOHNSON SYNDROME [None]
  - SWELLING FACE [None]
  - SWOLLEN TONGUE [None]
  - VISION BLURRED [None]
